FAERS Safety Report 7040512-8 (Version None)
Quarter: 2010Q4

REPORT INFORMATION
  Report Type: 
  Country: None (occurrence: None)
  Receive Date: 20101008
  Receipt Date: 20101008
  Transmission Date: 20110411
  Serious: Yes (Hospitalization, Disabling, Other)
  Sender: FDA-Public Use
  Company Number: None

PATIENT
  Sex: Male
  Weight: 72.5755 kg

DRUGS (1)
  1. AVODART [Suspect]
     Indication: PROSTATOMEGALY
     Dosage: 0.5 MG ONE A DAY
     Dates: start: 20070908, end: 20091214

REACTIONS (5)
  - BREAST MASS [None]
  - BREAST SWELLING [None]
  - HYPERAESTHESIA [None]
  - NIPPLE PAIN [None]
  - NIPPLE SWELLING [None]
